FAERS Safety Report 5766533-0 (Version None)
Quarter: 2008Q2

REPORT INFORMATION
  Report Type: 
  Country: None (occurrence: None)
  Receive Date: 20080612
  Receipt Date: 20080530
  Transmission Date: 20081010
  Serious: Yes (Other)
  Sender: FDA-Public Use
  Company Number: FR-ROCHE-567980

PATIENT
  Sex: Female

DRUGS (7)
  1. ROCEPHIN [Suspect]
     Indication: PYELONEPHRITIS
     Dosage: FORM: INJECTABLE SOLUTION.
     Route: 042
  2. GEMCITABINE [Suspect]
     Indication: PYELONEPHRITIS
     Dosage: DRUG NAME: GEMTAMICIN.
     Route: 042
  3. LEVOTHYROXINE SODIUM [Concomitant]
  4. ATENOLOL [Concomitant]
  5. STABLON [Concomitant]
  6. NEORECORMON [Concomitant]
  7. ATARAX [Concomitant]

REACTIONS (1)
  - RENAL FAILURE ACUTE [None]
